FAERS Safety Report 9289990 (Version 1)
Quarter: 2013Q2

REPORT INFORMATION
  Report Type: Spontaneous
  Country: US (occurrence: US)
  Receive Date: 20130515
  Receipt Date: 20130515
  Transmission Date: 20140414
  Serious: No
  Sender: FDA-Public Use
  Company Number: US-MYLANLABS-2012S1013002

PATIENT
  Age: 80 Year
  Sex: Male

DRUGS (3)
  1. FELODIPINE EXTENDED-RELEASE [Suspect]
     Indication: HYPERTENSION
     Route: 048
     Dates: start: 20120604, end: 20120608
  2. SYNTHROID [Concomitant]
  3. LABETALOL [Concomitant]

REACTIONS (3)
  - Dysuria [Not Recovered/Not Resolved]
  - Urine flow decreased [Not Recovered/Not Resolved]
  - Urine output decreased [Not Recovered/Not Resolved]
